FAERS Safety Report 8513637-5 (Version None)
Quarter: 2012Q3

REPORT INFORMATION
  Report Type: 
  Country: None (occurrence: None)
  Receive Date: 20120717
  Receipt Date: 20120713
  Transmission Date: 20120928
  Serious: No
  Sender: FDA-Public Use
  Company Number: US-PFIZER INC-2012169688

PATIENT
  Sex: Female

DRUGS (2)
  1. ESTRING [Suspect]
     Dosage: UNK
     Route: 067
  2. ESTRING [Suspect]
     Dosage: 2 MG, UNK
     Route: 067

REACTIONS (1)
  - RASH [None]
